FAERS Safety Report 12763831 (Version 1)
Quarter: 2016Q3

REPORT INFORMATION
  Report Type: Spontaneous
  Country: US (occurrence: US)
  Receive Date: 20160917
  Receipt Date: 20160917
  Transmission Date: 20161109
  Serious: No
  Sender: FDA-Public Use
  Company Number: None

PATIENT
  Age: 65 Year
  Sex: Male

DRUGS (1)
  1. STIVARGA [Suspect]
     Active Substance: REGORAFENIB
     Indication: APPENDIX CANCER
     Route: 048
     Dates: start: 20160106

REACTIONS (2)
  - Neuropathy peripheral [None]
  - Dysphonia [None]

NARRATIVE: CASE EVENT DATE: 201607
